FAERS Safety Report 4666717-9 (Version None)
Quarter: 2005Q2

REPORT INFORMATION
  Report Type: 
  Country: None (occurrence: None)
  Receive Date: 20050518
  Receipt Date: 20040527
  Transmission Date: 20051028
  Serious: No
  Sender: FDA-Public Use
  Company Number: 2004216749US

PATIENT
  Age: 44 Year
  Sex: Female
  Weight: 136.1 kg

DRUGS (11)
  1. PROVERA [Suspect]
     Indication: ENDOMETRIAL HYPERPLASIA
     Dosage: 10 MG, BID, UNK
     Route: 065
     Dates: start: 20040501
  2. MONOPRIL [Concomitant]
  3. CHLORTHALIDONE [Concomitant]
  4. LOPID [Concomitant]
  5. LIPITOR [Concomitant]
  6. GLUCOPHAGE [Concomitant]
  7. AMARYL [Concomitant]
  8. AVANDIA [Concomitant]
  9. LANTUS [Concomitant]
  10. CELEXA [Concomitant]
  11. ASPIRIN [Concomitant]

REACTIONS (1)
  - BLOOD GLUCOSE INCREASED [None]
